FAERS Safety Report 5519557-2 (Version None)
Quarter: 2007Q4

REPORT INFORMATION
  Report Type: 
  Country: None (occurrence: None)
  Receive Date: 20071116
  Receipt Date: 20071115
  Transmission Date: 20080405
  Serious: Yes (Death, Other)
  Sender: FDA-Public Use
  Company Number: B0495518A

PATIENT
  Age: 82 Year
  Sex: Female

DRUGS (11)
  1. CEFUROXIME AXETIL [Suspect]
     Indication: URINARY TRACT INFECTION
  2. FRUSEMIDE [Suspect]
     Indication: CARDIAC FAILURE
     Dosage: 120MG PER DAY
     Dates: end: 20070731
  3. BECLOMETHASONE DIPROPIONATE [Concomitant]
  4. GAVISCON [Concomitant]
  5. CO-CODAMOL [Concomitant]
  6. ALBUTEROL [Concomitant]
  7. TOLTERODINE TARTRATE [Concomitant]
     Dosage: 4MG PER DAY
  8. SENNA [Concomitant]
     Route: 048
  9. ADCAL D3 [Concomitant]
  10. MOVICOL [Concomitant]
  11. FLUOXETINE [Concomitant]
     Dosage: 20MG PER DAY

REACTIONS (4)
  - CLOSTRIDIUM DIFFICILE COLITIS [None]
  - HYPOKALAEMIA [None]
  - METABOLIC ALKALOSIS [None]
  - URINARY TRACT INFECTION [None]
